FAERS Safety Report 16913120 (Version 1)
Quarter: 2019Q4

REPORT INFORMATION
  Report Type: Report from Study
  Country: CA (occurrence: CA)
  Receive Date: 20191014
  Receipt Date: 20191014
  Transmission Date: 20200122
  Serious: Yes (Other)
  Sender: FDA-Public Use
  Company Number: CA-ORION CORPORATION ORION PHARMA-TREX2019-4180

PATIENT
  Age: 59 Year
  Sex: Female

DRUGS (6)
  1. CALCIUM [Concomitant]
     Active Substance: CALCIUM
     Route: 065
  2. METHOTREXATE (TRADE NAME UNKNOWN) [Suspect]
     Active Substance: METHOTREXATE
     Indication: PRODUCT USED FOR UNKNOWN INDICATION
     Route: 065
  3. VITAMIN D [Concomitant]
     Active Substance: VITAMIN D NOS
     Route: 065
  4. HUMIRA [Suspect]
     Active Substance: ADALIMUMAB
     Route: 058
  5. LOSARTAN. [Concomitant]
     Active Substance: LOSARTAN
     Route: 065
  6. HUMIRA [Suspect]
     Active Substance: ADALIMUMAB
     Indication: CROHN^S DISEASE
     Route: 058

REACTIONS (14)
  - Diplopia [Not Recovered/Not Resolved]
  - Intentional product misuse [Not Recovered/Not Resolved]
  - Abdominal pain [Not Recovered/Not Resolved]
  - Abdominal discomfort [Not Recovered/Not Resolved]
  - Epigastric discomfort [Not Recovered/Not Resolved]
  - Arthralgia [Not Recovered/Not Resolved]
  - Fatigue [Not Recovered/Not Resolved]
  - Joint stiffness [Not Recovered/Not Resolved]
  - Gastrointestinal inflammation [Not Recovered/Not Resolved]
  - Musculoskeletal stiffness [Not Recovered/Not Resolved]
  - Overdose [Not Recovered/Not Resolved]
  - Therapeutic response shortened [Not Recovered/Not Resolved]
  - Asthenia [Not Recovered/Not Resolved]
  - Intestinal polyp [Not Recovered/Not Resolved]
